FAERS Safety Report 5960396-6 (Version None)
Quarter: 2008Q4

REPORT INFORMATION
  Report Type: 
  Country: None (occurrence: None)
  Receive Date: 20081120
  Receipt Date: 20081114
  Transmission Date: 20090506
  Serious: Yes (Hospitalization)
  Sender: FDA-Public Use
  Company Number: US-GENENTECH-271808

PATIENT
  Age: 74 Year
  Sex: Female
  Weight: 50.8 kg

DRUGS (2)
  1. ERLOTINIB [Suspect]
     Indication: NON-SMALL CELL LUNG CANCER
     Dosage: UNK MG, UNK
     Dates: start: 20071120
  2. BEVACIZUMAB [Suspect]
     Indication: NON-SMALL CELL LUNG CANCER
     Dosage: UNK MG, UNK
     Dates: start: 20071120

REACTIONS (2)
  - CONFUSIONAL STATE [None]
  - HYPERTENSION [None]
